FAERS Safety Report 8811448 (Version 2)
Quarter: 2012Q4

REPORT INFORMATION
  Report Type: 
  Country: DE (occurrence: DE)
  Receive Date: 20120927
  Receipt Date: 20121023
  Transmission Date: 20130627
  Serious: Yes (Other)
  Sender: FDA-Public Use
  Company Number: DE-BRISTOL-MYERS SQUIBB COMPANY-16216780

PATIENT
  Age: 18 Year
  Sex: Female
  Weight: 63 kg

DRUGS (4)
  1. ABILIFY [Suspect]
     Indication: PSYCHOTIC DISORDER
     Dosage: increased to 5 mg 21Oct11 and again reduced to 2.5 mg
     Route: 048
     Dates: start: 20111018, end: 20111104
  2. ABILIFY [Suspect]
     Indication: HALLUCINATION
     Dosage: increased to 5 mg 21Oct11 and again reduced to 2.5 mg
     Route: 048
     Dates: start: 20111018, end: 20111104
  3. ABILIFY [Suspect]
     Indication: BIPOLAR DISORDER
     Dosage: increased to 5 mg 21Oct11 and again reduced to 2.5 mg
     Route: 048
     Dates: start: 20111018, end: 20111104
  4. TRUXAL [Concomitant]
     Indication: RESTLESSNESS
     Route: 048
     Dates: start: 20111025, end: 20111107

REACTIONS (4)
  - Abortion induced [Unknown]
  - Pregnancy [Recovered/Resolved]
  - Malaise [Unknown]
  - Paraesthesia [Recovered/Resolved]
